FAERS Safety Report 7870545-0 (Version None)
Quarter: 2011Q4

REPORT INFORMATION
  Report Type: 
  Country: None (occurrence: None)
  Receive Date: 20111029
  Receipt Date: 20110216
  Transmission Date: 20120403
  Serious: No
  Sender: FDA-Public Use
  Company Number: US-AMGEN-USASP2011009030

PATIENT
  Sex: Female
  Weight: 58.06 kg

DRUGS (4)
  1. ENBREL [Suspect]
     Indication: PRODUCT USED FOR UNKNOWN INDICATION
     Dosage: 50 MG, Q2WK
     Route: 058
  2. FISH OIL [Concomitant]
  3. ZOCOR [Concomitant]
     Dosage: 10 MG, UNK
  4. CLARITIN                           /00413701/ [Concomitant]
     Dosage: 10 MG, UNK

REACTIONS (2)
  - THERAPEUTIC RESPONSE DECREASED [None]
  - PSORIASIS [None]
